FAERS Safety Report 10060437 (Version 2)
Quarter: 2014Q2

REPORT INFORMATION
  Report Type: Spontaneous
  Country: US (occurrence: US)
  Receive Date: 20140404
  Receipt Date: 20140416
  Transmission Date: 20141212
  Serious: Yes (Death, Hospitalization)
  Sender: FDA-Public Use
  Company Number: US-PFIZER INC-2014095114

PATIENT
  Age: 28 Year
  Sex: Female

DRUGS (2)
  1. IBUPROFEN [Suspect]
     Dosage: UNK
     Route: 065
  2. HYDROCODONE [Suspect]
     Dosage: UNK
     Route: 065

REACTIONS (1)
  - Toxicity to various agents [Fatal]
